FAERS Safety Report 19026971 (Version 2)
Quarter: 2021Q4

REPORT INFORMATION
  Report Type: Spontaneous
  Country: US (occurrence: US)
  Receive Date: 20210318
  Receipt Date: 20211119
  Transmission Date: 20220303
  Serious: No
  Sender: FDA-Public Use
  Company Number: US-PFIZER INC-2021153800

PATIENT
  Age: 62 Year
  Sex: Female

DRUGS (2)
  1. ESTRING [Suspect]
     Active Substance: ESTRADIOL
     Dosage: UNK
     Dates: start: 2020
  2. PROLIA [Concomitant]
     Active Substance: DENOSUMAB

REACTIONS (5)
  - Dyspnoea [Recovered/Resolved]
  - Breast pain [Unknown]
  - Cough [Unknown]
  - Chest discomfort [Unknown]
  - Breast cyst [Unknown]

NARRATIVE: CASE EVENT DATE: 20200101
